FAERS Safety Report 7905299-2 (Version None)
Quarter: 2011Q4

REPORT INFORMATION
  Report Type: 
  Country: None (occurrence: None)
  Receive Date: 20111109
  Receipt Date: 20111020
  Transmission Date: 20120403
  Serious: Yes (Hospitalization, Disabling, Other)
  Sender: FDA-Public Use
  Company Number: PHEH2011US03638

PATIENT
  Sex: Female

DRUGS (11)
  1. GILENYA [Suspect]
     Dates: start: 20110912
  2. NEURONTIN [Concomitant]
     Indication: MULTIPLE SCLEROSIS
     Dosage: 600 (UNKNOWN UNITS), ONCE DAILY
     Route: 048
  3. SERTRALINE HYDROCHLORIDE [Concomitant]
     Dosage: UNK UKN, UNK
  4. NITROFURANTOIN [Concomitant]
     Dosage: UNK UKN, UNK
  5. GILENYA [Suspect]
     Indication: MULTIPLE SCLEROSIS
     Dosage: 0.5 MG, DAILY
     Route: 048
     Dates: start: 20110903, end: 20110911
  6. BACLOFEN [Concomitant]
     Indication: MULTIPLE SCLEROSIS
     Dosage: 40 (UNITS UNKNOWN), ONCE DAILY
     Route: 048
  7. METOPROLOL SUCCINATE [Concomitant]
  8. AMOXICILLIN [Concomitant]
  9. FAMPRIDINE [Concomitant]
     Dosage: UNK UKN, UNK
  10. LYRICA [Concomitant]
     Dosage: UNK UKN, UNK
  11. TOPRAL [Concomitant]
     Dosage: UNK UKN, UNK

REACTIONS (9)
  - THORACIC SPINE FLATTENING [None]
  - FEAR [None]
  - MUSCLE TIGHTNESS [None]
  - PARAPLEGIA [None]
  - ABASIA [None]
  - PARALYSIS [None]
  - HYPOAESTHESIA [None]
  - MUSCULAR WEAKNESS [None]
  - CENTRAL NERVOUS SYSTEM LESION [None]
